FAERS Safety Report 5941836-5 (Version None)
Quarter: 2008Q4

REPORT INFORMATION
  Report Type: 
  Country: None (occurrence: None)
  Receive Date: 20081105
  Receipt Date: 20081103
  Transmission Date: 20090506
  Serious: Yes (Other)
  Sender: FDA-Public Use
  Company Number: FR-BRISTOL-MYERS SQUIBB COMPANY-14353718

PATIENT
  Age: 42 Year
  Sex: Male
  Weight: 75 kg

DRUGS (2)
  1. SUSTIVA [Suspect]
     Dosage: ON 13MAY08 DOSE WAS REDUCED TO 400MG FROM 600MG.
     Dates: start: 20071206, end: 20080925
  2. KIVEXA [Concomitant]
     Dates: start: 20041109

REACTIONS (4)
  - NEUTROPENIA [None]
  - NIGHTMARE [None]
  - TRANSAMINASES INCREASED [None]
  - VERTIGO [None]
